FAERS Safety Report 15771708 (Version 1)
Quarter: 2018Q4

REPORT INFORMATION
  Report Type: Spontaneous
  Country: US (occurrence: US)
  Receive Date: 20181228
  Receipt Date: 20181228
  Transmission Date: 20190205
  Serious: Yes (Hospitalization)
  Sender: FDA-Public Use
  Company Number: None

PATIENT
  Age: 72 Year
  Sex: Male

DRUGS (22)
  1. DRONABINOL. [Concomitant]
     Active Substance: DRONABINOL
  2. KETOCONAZOLE. [Concomitant]
     Active Substance: KETOCONAZOLE
  3. FLUTICASONE. [Concomitant]
     Active Substance: FLUTICASONE
  4. ZYTIGA [Suspect]
     Active Substance: ABIRATERONE ACETATE
     Indication: NEOPLASM MALIGNANT
     Route: 048
  5. AMMONIUM [Concomitant]
  6. ELIGARD [Concomitant]
     Active Substance: LEUPROLIDE ACETATE
  7. KLOR-CON [Concomitant]
     Active Substance: POTASSIUM CHLORIDE
  8. ALBUTEROL. [Concomitant]
     Active Substance: ALBUTEROL
  9. LISINOPRIL. [Concomitant]
     Active Substance: LISINOPRIL
  10. CARVEDILOL. [Concomitant]
     Active Substance: CARVEDILOL
  11. METFORMIN [Concomitant]
     Active Substance: METFORMIN HYDROCHLORIDE
  12. GLIPIZIDE. [Concomitant]
     Active Substance: GLIPIZIDE
  13. JANUVIA [Concomitant]
     Active Substance: SITAGLIPTIN PHOSPHATE
  14. PANTOPRAZOE [Concomitant]
  15. ADVAIR HFA [Concomitant]
     Active Substance: FLUTICASONE PROPIONATE\SALMETEROL XINAFOATE
  16. PREDNISONE. [Concomitant]
     Active Substance: PREDNISONE
  17. THEOPHYLLINE [Concomitant]
     Active Substance: THEOPHYLLINE ANHYDROUS
  18. ATORVASTATIN [Concomitant]
     Active Substance: ATORVASTATIN
  19. DILT XR (DILTIAZEM HYDROCHLORIDE) [Concomitant]
     Active Substance: DILTIAZEM HYDROCHLORIDE
  20. BUMETANIDE. [Concomitant]
     Active Substance: BUMETANIDE
  21. SINGULAIR [Concomitant]
     Active Substance: MONTELUKAST SODIUM
  22. PRILOSEC [Concomitant]
     Active Substance: OMEPRAZOLE MAGNESIUM

REACTIONS (1)
  - Hospitalisation [None]

NARRATIVE: CASE EVENT DATE: 20181120
